APPROVED DRUG PRODUCT: ESCITALOPRAM OXALATE
Active Ingredient: ESCITALOPRAM OXALATE
Strength: EQ 20MG BASE
Dosage Form/Route: TABLET;ORAL
Application: A205619 | Product #003 | TE Code: AB
Applicant: AMNEAL PHARMACEUTICALS
Approved: May 17, 2017 | RLD: No | RS: No | Type: RX